FAERS Safety Report 12954314 (Version 1)
Quarter: 2016Q4

REPORT INFORMATION
  Report Type: Spontaneous
  Country: IT (occurrence: IT)
  Receive Date: 20161118
  Receipt Date: 20161118
  Transmission Date: 20170207
  Serious: Yes (Life-Threatening)
  Sender: FDA-Public Use
  Company Number: IT-ROCHE-1856062

PATIENT
  Age: 45 Year
  Sex: Male

DRUGS (8)
  1. ENOXAPARIN [Concomitant]
     Active Substance: ENOXAPARIN
     Route: 065
  2. PRASUGREL [Concomitant]
     Active Substance: PRASUGREL
     Route: 065
  3. ASPIRIN. [Concomitant]
     Active Substance: ASPIRIN
     Indication: CHEST PAIN
     Route: 042
  4. ABCIXIMAB [Concomitant]
     Active Substance: ABCIXIMAB
     Indication: CHEST PAIN
     Route: 040
  5. HEPARIN [Concomitant]
     Active Substance: HEPARIN SODIUM
  6. PRASUGREL [Concomitant]
     Active Substance: PRASUGREL
     Route: 065
  7. ORAMORPH [Suspect]
     Active Substance: MORPHINE SULFATE
     Indication: CHEST PAIN
     Route: 065
  8. ACTILYSE [Suspect]
     Active Substance: ALTEPLASE
     Indication: THROMBOLYSIS
     Dosage: INTRACORONARY
     Route: 065

REACTIONS (1)
  - Coronary artery embolism [Recovered/Resolved]
